FAERS Safety Report 26148969 (Version 1)
Quarter: 2025Q4

REPORT INFORMATION
  Report Type: Report from Study
  Country: AU (occurrence: AU)
  Receive Date: 20251212
  Receipt Date: 20251212
  Transmission Date: 20260117
  Serious: Yes (Other)
  Sender: ABBVIE
  Company Number: AU-ABBVIE-6579410

PATIENT
  Age: 76 Year
  Sex: Female

DRUGS (8)
  1. CARBIDOPA\LEVODOPA [Suspect]
     Active Substance: CARBIDOPA\LEVODOPA
     Indication: Parkinson^s disease
     Dosage: (0700 - 2000HRS) MORNING DOSE CONTINUE 3ML EXTRA DOSE 3ML (45 MINUTE LOCKOUT)?CONTINUOUS RATE 4.5...
     Route: 050
     Dates: start: 20240214
  2. CARBIDOPA\LEVODOPA [Suspect]
     Active Substance: CARBIDOPA\LEVODOPA
  3. APOMORPHINE [Concomitant]
     Active Substance: APOMORPHINE
     Indication: Product used for unknown indication
     Route: 058
     Dates: start: 2017, end: 2024
  4. BENSERAZIDE\LEVODOPA [Concomitant]
     Active Substance: BENSERAZIDE\LEVODOPA
     Indication: Product used for unknown indication
     Dosage: 100/25MG SR (HBS) X 2 NOCTE
  5. CARBIDOPA\ENTACAPONE\LEVODOPA [Concomitant]
     Active Substance: CARBIDOPA\ENTACAPONE\LEVODOPA
     Indication: Product used for unknown indication
     Dosage: 75/18.75/200MG
  6. ROTIGOTINE [Concomitant]
     Active Substance: ROTIGOTINE
     Indication: Product used for unknown indication
     Dosage: 8MG PATCH OVERNIGHT
  7. AMANTADINE [Concomitant]
     Active Substance: AMANTADINE
     Indication: Product used for unknown indication
     Dosage: 200MG MANE
  8. ESCITALOPRAM [Concomitant]
     Active Substance: ESCITALOPRAM OXALATE
     Indication: Product used for unknown indication
     Dosage: 20MG NOCTE, MANE PRN

REACTIONS (13)
  - Cataract [Unknown]
  - Device issue [Recovering/Resolving]
  - Abnormal dreams [Unknown]
  - Rapid eye movement sleep behaviour disorder [Unknown]
  - Hallucination, auditory [Unknown]
  - Paraesthesia [Unknown]
  - Muscle spasms [Not Recovered/Not Resolved]
  - Parkinson^s disease [Recovering/Resolving]
  - Mobility decreased [Unknown]
  - Therapeutic response shortened [Unknown]
  - Diplopia [Unknown]
  - Skin abrasion [Unknown]
  - Contusion [Unknown]
